FAERS Safety Report 4970155-9 (Version None)
Quarter: 2006Q2

REPORT INFORMATION
  Report Type: 
  Country: None (occurrence: None)
  Receive Date: 20060406
  Receipt Date: 20060328
  Transmission Date: 20061013
  Serious: Yes (Other)
  Sender: FDA-Public Use
  Company Number: 2006-03-1958

PATIENT

DRUGS (2)
  1. INTEGRILIN [Suspect]
     Dosage: INTRAVENOUS
     Route: 042
  2. COUMADIN [Concomitant]

REACTIONS (1)
  - CORONARY ARTERY THROMBOSIS [None]
